FAERS Safety Report 7555321-0 (Version None)
Quarter: 2011Q2

REPORT INFORMATION
  Report Type: 
  Country: None (occurrence: None)
  Receive Date: 20110617
  Receipt Date: 20110606
  Transmission Date: 20111010
  Serious: Yes (Other)
  Sender: FDA-Public Use
  Company Number: PHHY2011US30338

PATIENT
  Sex: Male
  Weight: 62 kg

DRUGS (7)
  1. ANDRODERM [Concomitant]
  2. EXJADE [Suspect]
     Indication: HAEMOSIDEROSIS
     Dosage: 1000 MG, QD
     Route: 048
     Dates: start: 20110204, end: 20110411
  3. ALBUTEROL SULFATE AUTOHALER [Concomitant]
  4. EXJADE [Suspect]
     Indication: MYELOFIBROSIS
     Dosage: 1250 MG, QD
     Route: 048
     Dates: start: 20101110, end: 20101215
  5. ALLOPURINOL [Concomitant]
  6. OMEPRAZOLE [Concomitant]
  7. TEMAZEPAM [Concomitant]

REACTIONS (3)
  - BLOOD CREATININE INCREASED [None]
  - THROMBOCYTOSIS [None]
  - PLATELET COUNT DECREASED [None]
